FAERS Safety Report 25922335 (Version 4)
Quarter: 2025Q4

REPORT INFORMATION
  Report Type: Spontaneous
  Country: EU (occurrence: EU)
  Receive Date: 20251015
  Receipt Date: 20251201
  Transmission Date: 20260118
  Serious: Yes (Life-Threatening, Hospitalization, Other)
  Sender: PIRAMAL
  Company Number: EU-PIRAMAL PHARMA LIMITED-2025-PPL-000575

PATIENT

DRUGS (3)
  1. SEVOFLURANE [Interacting]
     Active Substance: SEVOFLURANE
     Indication: Sedation
     Dosage: 1.23 VOL%/CONCENTRATION
     Dates: start: 20230929, end: 20231004
  2. AVIBACTAM SODIUM\CEFTAZIDIME [Interacting]
     Active Substance: AVIBACTAM SODIUM\CEFTAZIDIME
     Indication: Pneumonia
     Dosage: UNK
     Route: 042
     Dates: start: 20230926, end: 20231008
  3. DEXKETOPROFEN [Concomitant]
     Active Substance: DEXKETOPROFEN
     Indication: Product used for unknown indication
     Dosage: UNK

REACTIONS (7)
  - Polyuria [Recovered/Resolved]
  - Acute kidney injury [Recovered/Resolved]
  - Hypernatraemia [Recovered/Resolved]
  - Disease progression [Recovered/Resolved]
  - Hyperosmolar state [Recovered/Resolved]
  - Renal impairment [Recovered/Resolved]
  - Product use in unapproved indication [Unknown]

NARRATIVE: CASE EVENT DATE: 20230929
